FAERS Safety Report 5975648-3 (Version None)
Quarter: 2008Q4

REPORT INFORMATION
  Report Type: 
  Country: None (occurrence: None)
  Receive Date: 20081128
  Receipt Date: 20081118
  Transmission Date: 20090506
  Serious: Yes (Other)
  Sender: FDA-Public Use
  Company Number: CHPA2008US20207

PATIENT
  Age: 15 Year
  Sex: Female

DRUGS (1)
  1. TRIAMINIC UNKNOWN (NCH) (UNKNOWN) SYRUP [Suspect]
     Indication: NASOPHARYNGITIS
     Dosage: 1 TSP, Q6H, ORAL
     Route: 048

REACTIONS (1)
  - HAEMORRHAGE INTRACRANIAL [None]
